FAERS Safety Report 4575343-1 (Version None)
Quarter: 2005Q1

REPORT INFORMATION
  Report Type: 
  Country: None (occurrence: None)
  Receive Date: 20050209
  Receipt Date: 20050207
  Transmission Date: 20050727
  Serious: Yes (Congenital Anomaly)
  Sender: FDA-Public Use
  Company Number: PHNR2005AU00526

PATIENT
  Age: 0 Day
  Sex: Male
  Weight: 5 kg

DRUGS (2)
  1. FOLIC ACID [Concomitant]
     Route: 064
  2. TRILEPTAL [Suspect]
     Route: 064

REACTIONS (2)
  - ANKYLOGLOSSIA CONGENITAL [None]
  - DRUG EXPOSURE DURING PREGNANCY [None]
